FAERS Safety Report 5170617-8 (Version None)
Quarter: 2006Q4

REPORT INFORMATION
  Report Type: 
  Country: None (occurrence: None)
  Receive Date: 20061205
  Receipt Date: 20061121
  Transmission Date: 20070319
  Serious: Yes (Other)
  Sender: FDA-Public Use
  Company Number: 2006145406

PATIENT
  Age: 63 Year
  Sex: Male
  Weight: 35 kg

DRUGS (2)
  1. HALCION [Suspect]
     Dosage: 0.25 MG, ORAL
     Route: 048
  2. VFEND [Suspect]
     Dosage: 200 MG, INTRAVENOUS
     Route: 042
     Dates: start: 20061117

REACTIONS (5)
  - ABNORMAL BEHAVIOUR [None]
  - DRUG INTERACTION [None]
  - PORIOMANIA [None]
  - SELF-MEDICATION [None]
  - SOMNOLENCE [None]
